FAERS Safety Report 6687228-5 (Version None)
Quarter: 2010Q2

REPORT INFORMATION
  Report Type: 
  Country: None (occurrence: None)
  Receive Date: 20100419
  Receipt Date: 20091218
  Transmission Date: 20101027
  Serious: No
  Sender: FDA-Public Use
  Company Number: US-ABBOTT-09P-163-0616402-00

PATIENT
  Age: 60 Year
  Sex: Female

DRUGS (1)
  1. ZEMPLAR [Suspect]
     Indication: BLOOD PARATHYROID HORMONE INCREASED
     Route: 042
     Dates: start: 20091001

REACTIONS (1)
  - DYSGEUSIA [None]
